FAERS Safety Report 9267583 (Version 4)
Quarter: 2013Q2

REPORT INFORMATION
  Report Type: Spontaneous
  Country: US (occurrence: US)
  Receive Date: 20130502
  Receipt Date: 20130604
  Transmission Date: 20140414
  Serious: No
  Sender: FDA-Public Use
  Company Number: US-009507513-1304USA016672

PATIENT
  Sex: Female

DRUGS (1)
  1. NEXPLANON [Suspect]
     Indication: CONTRACEPTION
     Dosage: UNK
     Route: 059
     Dates: end: 20130411

REACTIONS (4)
  - Menorrhagia [Unknown]
  - Device difficult to use [Recovered/Resolved]
  - Device kink [Recovered/Resolved]
  - Product quality issue [Unknown]
